FAERS Safety Report 10264656 (Version 1)
Quarter: 2014Q2

REPORT INFORMATION
  Report Type: Spontaneous
  Country: GB (occurrence: GB)
  Receive Date: 20140627
  Receipt Date: 20140627
  Transmission Date: 20141212
  Serious: Yes (Other)
  Sender: FDA-Public Use
  Company Number: GB-ASTRAZENECA-2014SE45865

PATIENT
  Sex: 0

DRUGS (2)
  1. BRILIQUE [Suspect]
     Route: 048
  2. ASPIRIN [Suspect]
     Dosage: 300 MG
     Route: 065

REACTIONS (2)
  - Transient ischaemic attack [Unknown]
  - Circumstance or information capable of leading to medication error [Unknown]
